FAERS Safety Report 20196228 (Version 15)
Quarter: 2025Q2

REPORT INFORMATION
  Report Type: Spontaneous
  Country: PL (occurrence: PL)
  Receive Date: 20211216
  Receipt Date: 20250630
  Transmission Date: 20250716
  Serious: Yes (Other)
  Sender: PFIZER
  Company Number: PL-002147023-NVSC2021PL271842

PATIENT
  Age: 88 Year
  Sex: Male

DRUGS (95)
  1. ATORVASTATIN CALCIUM [Suspect]
     Active Substance: ATORVASTATIN CALCIUM
     Dosage: 40 MILLIGRAM, QD
     Route: 065
     Dates: start: 201810
  2. ATORVASTATIN CALCIUM [Suspect]
     Active Substance: ATORVASTATIN CALCIUM
     Dosage: 40 MILLIGRAM, QD
     Route: 065
     Dates: start: 201910
  3. ATORVASTATIN CALCIUM [Suspect]
     Active Substance: ATORVASTATIN CALCIUM
     Dosage: 40 MILLIGRAM, QD
     Route: 065
  4. ATORVASTATIN CALCIUM [Suspect]
     Active Substance: ATORVASTATIN CALCIUM
     Dosage: 40 MILLIGRAM, QD
     Route: 065
     Dates: start: 20211112
  5. ATORVASTATIN CALCIUM [Suspect]
     Active Substance: ATORVASTATIN CALCIUM
     Route: 065
  6. EPLERENONE [Suspect]
     Active Substance: EPLERENONE
     Dosage: 25 MILLIGRAM, QD, AT NOON
     Route: 065
     Dates: start: 201810
  7. EPLERENONE [Suspect]
     Active Substance: EPLERENONE
     Dosage: 50 MILLIGRAM, QD
     Route: 065
     Dates: start: 201910
  8. EPLERENONE [Suspect]
     Active Substance: EPLERENONE
     Dosage: 25 MILLIGRAM, QD
     Route: 065
     Dates: start: 202109
  9. EPLERENONE [Suspect]
     Active Substance: EPLERENONE
     Dosage: 25 MILLIGRAM, QD
     Route: 065
     Dates: start: 20211112
  10. ASPIRIN [Suspect]
     Active Substance: ASPIRIN
     Dosage: 2.5 MG, BID
     Route: 065
     Dates: start: 201810
  11. APIXABAN [Suspect]
     Active Substance: APIXABAN
     Indication: Cerebrovascular accident prophylaxis
     Dosage: 2.5 MILLIGRAM, BID
     Route: 065
     Dates: start: 201810
  12. APIXABAN [Suspect]
     Active Substance: APIXABAN
     Dosage: 2.5 MILLIGRAM, BID
     Route: 065
     Dates: start: 201910
  13. APIXABAN [Suspect]
     Active Substance: APIXABAN
     Dosage: 2.5 MILLIGRAM, BID
     Route: 065
     Dates: start: 20211112
  14. APIXABAN [Suspect]
     Active Substance: APIXABAN
     Route: 065
     Dates: start: 20211112
  15. APIXABAN [Suspect]
     Active Substance: APIXABAN
     Dosage: 2.5 MILLIGRAM, Q12H
     Route: 065
  16. PANTOPRAZOLE [Suspect]
     Active Substance: PANTOPRAZOLE
     Dosage: 20 MG, QD
     Route: 065
     Dates: start: 201810
  17. PANTOPRAZOLE [Suspect]
     Active Substance: PANTOPRAZOLE
     Dosage: 20 MG, QD
     Route: 065
     Dates: start: 201910
  18. PANTOPRAZOLE [Suspect]
     Active Substance: PANTOPRAZOLE
     Dosage: 10 MG, QD
     Route: 065
     Dates: start: 202109
  19. PANTOPRAZOLE [Suspect]
     Active Substance: PANTOPRAZOLE
     Dosage: 20 MILLIGRAM, QD
     Route: 065
     Dates: start: 202109
  20. PANTOPRAZOLE [Suspect]
     Active Substance: PANTOPRAZOLE
     Dosage: 20 MILLIGRAM, QD
     Route: 065
     Dates: start: 202110
  21. PANTOPRAZOLE [Suspect]
     Active Substance: PANTOPRAZOLE
     Dosage: 10 MILLIGRAM, QD
     Route: 065
     Dates: start: 202111
  22. PANTOPRAZOLE [Suspect]
     Active Substance: PANTOPRAZOLE
     Dosage: 20 MILLIGRAM, QD
     Route: 065
     Dates: start: 202111
  23. PANTOPRAZOLE [Suspect]
     Active Substance: PANTOPRAZOLE
     Dosage: 20 MILLIGRAM, QD
     Route: 065
     Dates: start: 20211112
  24. PANTOPRAZOLE [Suspect]
     Active Substance: PANTOPRAZOLE
     Route: 065
     Dates: start: 20211112
  25. TORSEMIDE [Suspect]
     Active Substance: TORSEMIDE
     Dosage: 10 MG, QD, IN THE MORNING
     Route: 065
     Dates: start: 201810
  26. TORSEMIDE [Suspect]
     Active Substance: TORSEMIDE
     Dosage: 15 MILLIGRAM, QD
     Route: 065
     Dates: start: 201810
  27. TORSEMIDE [Suspect]
     Active Substance: TORSEMIDE
     Dosage: 10 MILLIGRAM, QD
     Route: 065
     Dates: start: 201910
  28. TORSEMIDE [Suspect]
     Active Substance: TORSEMIDE
     Dosage: 15 MILLIGRAM, QD
     Route: 065
     Dates: start: 201910
  29. TORSEMIDE [Suspect]
     Active Substance: TORSEMIDE
     Dosage: 40 MILLIGRAM, QD
     Route: 065
     Dates: start: 201910
  30. TORSEMIDE [Suspect]
     Active Substance: TORSEMIDE
     Dosage: 10 MILLIGRAM, BID
     Route: 065
     Dates: start: 202109
  31. TORSEMIDE [Suspect]
     Active Substance: TORSEMIDE
     Dosage: 20 MILLIGRAM, QD
     Route: 065
     Dates: start: 202109
  32. TORSEMIDE [Suspect]
     Active Substance: TORSEMIDE
     Dosage: 10 MILLIGRAM, BID
     Route: 065
     Dates: start: 20211112
  33. TORSEMIDE [Suspect]
     Active Substance: TORSEMIDE
     Dosage: 40 MILLIGRAM, QD
     Route: 065
     Dates: start: 20211112
  34. TORSEMIDE [Suspect]
     Active Substance: TORSEMIDE
     Dosage: 20 MILLIGRAM, QD
     Route: 065
     Dates: start: 20211112
  35. TORSEMIDE [Suspect]
     Active Substance: TORSEMIDE
     Dosage: 10 MILLIGRAM, QD
     Route: 065
  36. TORSEMIDE [Suspect]
     Active Substance: TORSEMIDE
     Dosage: 15 MILLIGRAM, QD
     Route: 065
  37. TORSEMIDE [Suspect]
     Active Substance: TORSEMIDE
     Dosage: 10 MILLIGRAM, Q12H
     Route: 065
  38. TORSEMIDE [Suspect]
     Active Substance: TORSEMIDE
     Dosage: 20 MILLIGRAM, QD
     Route: 065
  39. TORSEMIDE [Suspect]
     Active Substance: TORSEMIDE
     Dosage: 10 MILLIGRAM, QD
     Route: 065
  40. TORSEMIDE [Suspect]
     Active Substance: TORSEMIDE
     Dosage: UNK UNK, QD
     Route: 065
  41. ROSUVASTATIN [Suspect]
     Active Substance: ROSUVASTATIN
     Dosage: 10 MILLIGRAM, QD
     Route: 065
     Dates: start: 201909
  42. ROSUVASTATIN [Suspect]
     Active Substance: ROSUVASTATIN
     Dosage: 10 MILLIGRAM, QD
     Route: 065
     Dates: start: 201910
  43. ROSUVASTATIN [Suspect]
     Active Substance: ROSUVASTATIN
     Route: 065
     Dates: start: 20191112
  44. ROSUVASTATIN [Suspect]
     Active Substance: ROSUVASTATIN
     Dosage: 10 MILLIGRAM, QD
     Route: 065
     Dates: start: 202109
  45. ROSUVASTATIN [Suspect]
     Active Substance: ROSUVASTATIN
     Dosage: 20 MILLIGRAM, QD
     Route: 065
     Dates: start: 20211112
  46. PANTOPRAZOLE SODIUM [Suspect]
     Active Substance: PANTOPRAZOLE SODIUM
     Dosage: 20 MILLIGRAM, QD
     Route: 065
     Dates: start: 201810
  47. PANTOPRAZOLE SODIUM [Suspect]
     Active Substance: PANTOPRAZOLE SODIUM
     Dosage: 20 MILLIGRAM, QD
     Route: 065
     Dates: start: 201910
  48. PANTOPRAZOLE SODIUM [Suspect]
     Active Substance: PANTOPRAZOLE SODIUM
     Dosage: 10 MILLIGRAM, QD
     Route: 065
     Dates: start: 202109
  49. PANTOPRAZOLE SODIUM [Suspect]
     Active Substance: PANTOPRAZOLE SODIUM
     Dosage: 20 MILLIGRAM, QD
     Route: 065
     Dates: start: 20211112
  50. RAMIPRIL [Suspect]
     Active Substance: RAMIPRIL
     Dosage: 2.5 MILLIGRAM, BID, IN THE MORNING AND EVENING
     Route: 065
  51. RAMIPRIL [Suspect]
     Active Substance: RAMIPRIL
     Dosage: 2.5 MILLIGRAM, QD
     Route: 065
  52. RAMIPRIL [Suspect]
     Active Substance: RAMIPRIL
     Dosage: 5 MILLIGRAM, QD
     Route: 065
  53. RAMIPRIL [Suspect]
     Active Substance: RAMIPRIL
     Route: 065
  54. SACUBITRIL\VALSARTAN [Suspect]
     Active Substance: SACUBITRIL\VALSARTAN
     Route: 065
     Dates: start: 201810
  55. SACUBITRIL\VALSARTAN [Suspect]
     Active Substance: SACUBITRIL\VALSARTAN
     Dosage: DOSAGE FORM (24/26 MG)
     Route: 065
     Dates: start: 201810
  56. SACUBITRIL\VALSARTAN [Suspect]
     Active Substance: SACUBITRIL\VALSARTAN
     Dosage: 2 DOSAGE FORM, Q12H
     Route: 065
     Dates: start: 201911
  57. SACUBITRIL\VALSARTAN [Suspect]
     Active Substance: SACUBITRIL\VALSARTAN
     Route: 065
     Dates: start: 202109
  58. SACUBITRIL\VALSARTAN [Suspect]
     Active Substance: SACUBITRIL\VALSARTAN
     Dosage: DOSAGE FORM (24/26 MG)
     Route: 065
     Dates: start: 202109
  59. SACUBITRIL\VALSARTAN [Suspect]
     Active Substance: SACUBITRIL\VALSARTAN
     Dosage: 1 DOSAGE FORM, QD
     Route: 065
     Dates: start: 202111
  60. SACUBITRIL\VALSARTAN [Suspect]
     Active Substance: SACUBITRIL\VALSARTAN
     Dosage: DOSAGE FORM (24/26 MG) BID
     Route: 065
     Dates: start: 20211112
  61. SACUBITRIL\VALSARTAN [Suspect]
     Active Substance: SACUBITRIL\VALSARTAN
     Dosage: 1 DOSAGE FORM, QD
     Route: 065
     Dates: start: 20211112
  62. SACUBITRIL\VALSARTAN [Suspect]
     Active Substance: SACUBITRIL\VALSARTAN
     Dosage: 1 DF, QD
     Dates: start: 20211112
  63. SACUBITRIL\VALSARTAN [Suspect]
     Active Substance: SACUBITRIL\VALSARTAN
     Dosage: 1 DOSAGE FORM, QD
     Route: 065
  64. SACUBITRIL\VALSARTAN [Suspect]
     Active Substance: SACUBITRIL\VALSARTAN
     Dosage: 2 DOSAGE FORM, QD
     Route: 065
  65. METOPROLOL TARTRATE [Suspect]
     Active Substance: METOPROLOL TARTRATE
     Dosage: 25 MILLIGRAM, TID, IN THE MORNING, AT NOON AND IN THE EVENING
     Route: 065
     Dates: start: 201810
  66. METOPROLOL TARTRATE [Suspect]
     Active Substance: METOPROLOL TARTRATE
     Route: 065
     Dates: start: 201810
  67. METOPROLOL TARTRATE [Suspect]
     Active Substance: METOPROLOL TARTRATE
     Dosage: 25 MILLIGRAM, TID, IN THE MORNING, AT NOON AND IN THE EVENING
     Route: 065
     Dates: start: 201910
  68. METOPROLOL TARTRATE [Suspect]
     Active Substance: METOPROLOL TARTRATE
     Dosage: 75 MILLIGRAM, QD
     Route: 065
     Dates: start: 201910
  69. METOPROLOL TARTRATE [Suspect]
     Active Substance: METOPROLOL TARTRATE
     Dosage: 100 MILLIGRAM, BID
     Route: 065
     Dates: start: 201911
  70. METOPROLOL TARTRATE [Suspect]
     Active Substance: METOPROLOL TARTRATE
     Dosage: 200 MILLIGRAM, QD
     Route: 065
     Dates: start: 201911
  71. METOPROLOL TARTRATE [Suspect]
     Active Substance: METOPROLOL TARTRATE
     Dosage: 100 MILLIGRAM, QD
     Route: 065
     Dates: start: 201911
  72. METOPROLOL TARTRATE [Suspect]
     Active Substance: METOPROLOL TARTRATE
     Dosage: 5 MILLIGRAM, QD
     Route: 065
     Dates: start: 20211112
  73. METOPROLOL TARTRATE [Suspect]
     Active Substance: METOPROLOL TARTRATE
     Dosage: 100 MILLIGRAM, Q12H
     Route: 065
  74. METOPROLOL TARTRATE [Suspect]
     Active Substance: METOPROLOL TARTRATE
     Dosage: 200 MILLIGRAM, QD
     Route: 065
  75. METOPROLOL TARTRATE [Suspect]
     Active Substance: METOPROLOL TARTRATE
     Dosage: 75 MILLIGRAM, TID
     Route: 065
  76. METOPROLOL TARTRATE [Suspect]
     Active Substance: METOPROLOL TARTRATE
     Route: 065
  77. METOPROLOL TARTRATE [Suspect]
     Active Substance: METOPROLOL TARTRATE
     Route: 065
  78. FUROSEMIDE [Suspect]
     Active Substance: FUROSEMIDE
     Dosage: 40 MILLIGRAM, BID
     Route: 065
     Dates: start: 201810
  79. FUROSEMIDE [Suspect]
     Active Substance: FUROSEMIDE
     Dosage: 160 MILLIGRAM, QD
     Route: 065
     Dates: start: 201810
  80. FUROSEMIDE [Suspect]
     Active Substance: FUROSEMIDE
     Dosage: 40 MG QAM
     Dates: start: 201810
  81. FUROSEMIDE [Suspect]
     Active Substance: FUROSEMIDE
     Dosage: 40 MG, QD
     Route: 065
     Dates: start: 201910
  82. FUROSEMIDE [Suspect]
     Active Substance: FUROSEMIDE
     Dosage: 40 MILLIGRAM, BID
     Route: 065
     Dates: start: 201910
  83. FUROSEMIDE [Suspect]
     Active Substance: FUROSEMIDE
     Dosage: 40 MILLIGRAM, BID
     Route: 065
     Dates: start: 202109
  84. FUROSEMIDE [Suspect]
     Active Substance: FUROSEMIDE
     Dosage: 40 MG, BID
     Route: 065
     Dates: start: 20211112
  85. FUROSEMIDE [Suspect]
     Active Substance: FUROSEMIDE
     Dosage: 50 MILLIGRAM, QD
     Route: 065
  86. FUROSEMIDE [Suspect]
     Active Substance: FUROSEMIDE
     Dosage: 80 MILLIGRAM, QD
     Dates: start: 20211112
  87. FUROSEMIDE [Suspect]
     Active Substance: FUROSEMIDE
  88. NYSTATIN\ZINC OXIDE [Suspect]
     Active Substance: NYSTATIN\ZINC OXIDE
  89. ASPIRIN [Suspect]
     Active Substance: ASPIRIN
     Dosage: 2.5 MG, BID
     Route: 065
     Dates: start: 201810
  90. ASPIRIN [Suspect]
     Active Substance: ASPIRIN
     Dosage: 5 MILLIGRAM, QD
     Route: 065
     Dates: start: 201810
  91. ASPIRIN [Suspect]
     Active Substance: ASPIRIN
     Dosage: 10 MG, QD
     Route: 065
  92. SACUBITRIL [Suspect]
     Active Substance: SACUBITRIL
     Dosage: UNK UNK, QD
     Route: 065
  93. SACUBITRIL [Suspect]
     Active Substance: SACUBITRIL
     Dosage: 1 DOSAGE FORM, QD
     Route: 065
  94. SACUBITRIL [Suspect]
     Active Substance: SACUBITRIL
     Dosage: 1 DOSAGE FORM, Q12H
     Route: 065
  95. SACUBITRIL [Suspect]
     Active Substance: SACUBITRIL
     Dosage: 4 DOSAGE FORM, QD
     Route: 065

REACTIONS (16)
  - Cardiogenic shock [Unknown]
  - Cardiomyopathy [Unknown]
  - Pneumonia [Unknown]
  - Chronic kidney disease [Unknown]
  - Pulmonary congestion [Unknown]
  - Atrial thrombosis [Unknown]
  - Urinary tract infection [Unknown]
  - Dilated cardiomyopathy [Unknown]
  - Sinus tachycardia [Unknown]
  - Cardiac failure [Unknown]
  - Myopathy [Unknown]
  - Ventricular arrhythmia [Unknown]
  - Atrial fibrillation [Unknown]
  - Cardiac failure chronic [Unknown]
  - Low cardiac output syndrome [Unknown]
  - Dyskinesia [Unknown]

NARRATIVE: CASE EVENT DATE: 20180101
